FAERS Safety Report 15375129 (Version 2)
Quarter: 2018Q4

REPORT INFORMATION
  Report Type: Report from Study
  Country: US (occurrence: US)
  Receive Date: 20180912
  Receipt Date: 20181001
  Transmission Date: 20190204
  Serious: No
  Sender: FDA-Public Use
  Company Number: US-ALEXION PHARMACEUTICALS INC.-A201811782

PATIENT
  Age: 46 Year
  Sex: Female
  Weight: 114.97 kg

DRUGS (2)
  1. STRENSIQ [Suspect]
     Active Substance: ASFOTASE ALFA
     Indication: HYPOPHOSPHATASIA
     Dosage: UNK
     Route: 065
     Dates: start: 201804
  2. STRENSIQ [Suspect]
     Active Substance: ASFOTASE ALFA
     Dosage: 230 MG, TIW
     Route: 058

REACTIONS (2)
  - Heart rate increased [Unknown]
  - Thyroid mass [Unknown]

NARRATIVE: CASE EVENT DATE: 20180906
